FAERS Safety Report 6633481-3 (Version None)
Quarter: 2010Q1

REPORT INFORMATION
  Report Type: 
  Country: None (occurrence: None)
  Receive Date: 20100312
  Receipt Date: 20100302
  Transmission Date: 20100710
  Serious: Yes (Other)
  Sender: FDA-Public Use
  Company Number: US-ABBOTT-10P-163-0629933-00

PATIENT
  Sex: Female
  Weight: 96.702 kg

DRUGS (1)
  1. NORVIR [Suspect]
     Indication: HIV INFECTION
     Dates: start: 20050101, end: 20100223

REACTIONS (4)
  - DYSPEPSIA [None]
  - ERUCTATION [None]
  - NAUSEA [None]
  - PSEUDOMYXOMA PERITONEI [None]
